FAERS Safety Report 12519170 (Version 1)
Quarter: 2016Q2

REPORT INFORMATION
  Report Type: Spontaneous
  Country: US (occurrence: US)
  Receive Date: 20160630
  Receipt Date: 20160630
  Transmission Date: 20160815
  Serious: No
  Sender: FDA-Public Use
  Company Number: US-PERRIGO-15US010117

PATIENT
  Age: 54 Year
  Sex: Male
  Weight: 76.64 kg

DRUGS (4)
  1. PRAMOSONE [Suspect]
     Active Substance: HYDROCORTISONE ACETATE\PRAMOXINE HYDROCHLORIDE
     Indication: PRURITUS
  2. FLUTICASONE PROPIONATE. [Suspect]
     Active Substance: FLUTICASONE PROPIONATE
     Indication: BURNING SENSATION
     Dosage: ONE APPLICATION, BID
     Route: 061
     Dates: start: 20101008, end: 20101020
  3. PRAMOSONE [Suspect]
     Active Substance: HYDROCORTISONE ACETATE\PRAMOXINE HYDROCHLORIDE
     Indication: PAIN
     Dosage: UNK
     Route: 061
     Dates: start: 20101021, end: 2010
  4. ECONAZOLE NITRATE. [Suspect]
     Active Substance: ECONAZOLE NITRATE
     Indication: FUNGAL INFECTION
     Dosage: ONE SMALL APPLICATION, BID
     Route: 061
     Dates: start: 20101006, end: 20101020

REACTIONS (12)
  - Application site pain [Not Recovered/Not Resolved]
  - Application site pruritus [Not Recovered/Not Resolved]
  - Application site rash [Not Recovered/Not Resolved]
  - Application site discolouration [Not Recovered/Not Resolved]
  - Gastrooesophageal reflux disease [Recovered/Resolved]
  - Dyspepsia [Recovered/Resolved]
  - Hypoaesthesia oral [Recovered/Resolved]
  - Dyspnoea [Recovered/Resolved]
  - Oropharyngeal pain [Recovered/Resolved]
  - Application site erythema [Not Recovered/Not Resolved]
  - Application site discomfort [Not Recovered/Not Resolved]
  - Chest pain [Recovered/Resolved]

NARRATIVE: CASE EVENT DATE: 20101006
